FAERS Safety Report 5656858 (Version 10)
Quarter: 2016Q3

REPORT INFORMATION
  Report Type: Spontaneous
  Country: US (occurrence: US)
  Receive Date: 20041102
  Receipt Date: 20160729
  Transmission Date: 20161109
  Serious: Yes (Disabling, Other)
  Sender: FDA-Public Use
  Company Number: US-ROCHE-384635

PATIENT
  Age: 17 Year
  Sex: Male
  Weight: 46.3 kg

DRUGS (5)
  1. ACCUTANE [Suspect]
     Active Substance: ISOTRETINOIN
     Route: 048
     Dates: start: 20000223, end: 20000926
  2. ACCUTANE [Suspect]
     Active Substance: ISOTRETINOIN
     Dosage: 11 CAPSULES PER WEEK.
     Route: 048
     Dates: start: 19991110, end: 20000119
  3. ACCUTANE [Suspect]
     Active Substance: ISOTRETINOIN
     Route: 048
     Dates: start: 20000119, end: 20000223
  4. ACCUTANE [Suspect]
     Active Substance: ISOTRETINOIN
     Indication: ACNE
     Route: 048
     Dates: start: 19990929, end: 19991013
  5. ACCUTANE [Suspect]
     Active Substance: ISOTRETINOIN
     Dosage: ALTERNATING DOSE OF 40MG WITH AN UNKNOWN DOSE.
     Route: 048
     Dates: start: 19991013, end: 19991110

REACTIONS (35)
  - Colitis ulcerative [Unknown]
  - Perirectal abscess [Unknown]
  - Gastritis [Unknown]
  - Herpes oesophagitis [Unknown]
  - Anorectal discomfort [Unknown]
  - Pyrexia [Unknown]
  - Colitis [Unknown]
  - Crohn^s disease [Not Recovered/Not Resolved]
  - Proctitis [Unknown]
  - Lip exfoliation [Unknown]
  - Rectal haemorrhage [Unknown]
  - Anal fistula [Unknown]
  - Abdominal pain upper [Unknown]
  - Gastroenteritis adenovirus [Unknown]
  - Proctitis ulcerative [Unknown]
  - Pain [Unknown]
  - Rhinitis allergic [Unknown]
  - Internal injury [Unknown]
  - Gastrointestinal disorder [Unknown]
  - Diarrhoea haemorrhagic [Unknown]
  - Abdominal pain [Unknown]
  - Vomiting [Unknown]
  - Dry skin [Unknown]
  - Inflammatory bowel disease [Unknown]
  - Intestinal haemorrhage [Unknown]
  - Odynophagia [Unknown]
  - Weight decreased [Unknown]
  - Pouchitis [Unknown]
  - Anal inflammation [Unknown]
  - Diarrhoea [Unknown]
  - Haemorrhoids [Unknown]
  - Oesophageal ulcer [Unknown]
  - Aphthous ulcer [Unknown]
  - Acne [Unknown]
  - Anaemia [Unknown]

NARRATIVE: CASE EVENT DATE: 19991013
